FAERS Safety Report 15494741 (Version 2)
Quarter: 2019Q1

REPORT INFORMATION
  Report Type: Spontaneous
  Country: DE (occurrence: DE)
  Receive Date: 20181012
  Receipt Date: 20190215
  Transmission Date: 20190417
  Serious: Yes (Death, Hospitalization, Other)
  Sender: FDA-Public Use
  Company Number: PHHY2018DE123302

PATIENT
  Age: 77 Year
  Sex: Female
  Weight: 83 kg

DRUGS (2)
  1. DASATINIB. [Suspect]
     Active Substance: DASATINIB
     Indication: CHRONIC MYELOID LEUKAEMIA
     Dosage: 140 MG, UNK 7 DAYS/WEEK 200MG
     Route: 065
     Dates: start: 20140312, end: 20140327
  2. NILOTINIB [Suspect]
     Active Substance: NILOTINIB
     Indication: CHRONIC MYELOID LEUKAEMIA
     Dosage: 400 MG, UNK 800 MG TOTAL 7DAYS/WEEK
     Route: 065
     Dates: start: 20140305, end: 20140311

REACTIONS (7)
  - Thrombocytopenia [Not Recovered/Not Resolved]
  - Weight decreased [Fatal]
  - Pneumonia [Fatal]
  - Sepsis [Recovered/Resolved]
  - Acute myeloid leukaemia [Unknown]
  - Anaemia [Recovering/Resolving]
  - Leukopenia [Recovering/Resolving]

NARRATIVE: CASE EVENT DATE: 20140203
